FAERS Safety Report 8943570 (Version 2)
Quarter: 2012Q4

REPORT INFORMATION
  Report Type: 
  Country: DE (occurrence: DE)
  Receive Date: 20121203
  Receipt Date: 20121213
  Transmission Date: 20130627
  Serious: Yes (Life-Threatening)
  Sender: FDA-Public Use
  Company Number: DE-B.I. PHARMACEUTICALS,INC./RIDGEFIELD-2012-DE-02876DE

PATIENT
  Age: 81 Year
  Sex: Female
  Weight: 70 kg

DRUGS (6)
  1. PRADAXA [Suspect]
     Indication: ATRIAL FIBRILLATION
     Dosage: 110 mg
  2. PRADAXA [Suspect]
     Indication: RENAL FAILURE
  3. METOPROLOL [Concomitant]
     Dosage: 100 NR
  4. DIGIMERCK [Concomitant]
     Route: 048
  5. RAMIPRIL [Concomitant]
     Dosage: 2.5 NR
  6. CITALOPRAM [Concomitant]
     Dosage: 20 NR

REACTIONS (1)
  - Embolic stroke [Recovered/Resolved with Sequelae]
